FAERS Safety Report 7653666-7 (Version None)
Quarter: 2011Q3

REPORT INFORMATION
  Report Type: 
  Country: None (occurrence: None)
  Receive Date: 20110803
  Receipt Date: 20110721
  Transmission Date: 20111222
  Serious: Yes (Other)
  Sender: FDA-Public Use
  Company Number: US-ROCHE-736827

PATIENT
  Sex: Female
  Weight: 54.4 kg

DRUGS (1)
  1. ACCUTANE [Suspect]
     Indication: ACNE
     Route: 065
     Dates: start: 19850101, end: 19850701

REACTIONS (8)
  - COLONIC POLYP [None]
  - GASTROINTESTINAL INJURY [None]
  - INFLAMMATORY BOWEL DISEASE [None]
  - SUICIDAL IDEATION [None]
  - IRRITABLE BOWEL SYNDROME [None]
  - DEPRESSION [None]
  - INTESTINAL OBSTRUCTION [None]
  - COLITIS ULCERATIVE [None]
